FAERS Safety Report 4415469-6 (Version None)
Quarter: 2004Q3

REPORT INFORMATION
  Report Type: 
  Country: None (occurrence: None)
  Receive Date: 20040730
  Receipt Date: 20040719
  Transmission Date: 20050211
  Serious: Yes (Life-Threatening)
  Sender: FDA-Public Use
  Company Number: 2004222710GB

PATIENT
  Age: 39 Year
  Sex: Female

DRUGS (1)
  1. GENOTROPIN [Suspect]
     Indication: HYPOPITUITARISM
     Dosage: SUBCUTANEOUS
     Route: 058

REACTIONS (1)
  - CREUTZFELDT-JAKOB DISEASE [None]
